FAERS Safety Report 14854465 (Version 1)
Quarter: 2018Q2

REPORT INFORMATION
  Report Type: Spontaneous
  Country: US (occurrence: US)
  Receive Date: 20180420
  Receipt Date: 20180420
  Transmission Date: 20180711
  Serious: No
  Sender: FDA-Public Use
  Company Number: None

PATIENT
  Age: 70 Year
  Sex: Male
  Weight: 78.75 kg

DRUGS (11)
  1. ZINC. [Concomitant]
     Active Substance: ZINC
  2. TRIAMTERENE 37.5MG/HCTZ 25MG [Suspect]
     Active Substance: HYDROCHLOROTHIAZIDE\TRIAMTERENE
     Indication: FLUID RETENTION
     Dosage: ?          QUANTITY:1 DF DOSAGE FORM;?
     Route: 048
     Dates: start: 20170201, end: 20171206
  3. ARMODAFINIL. [Concomitant]
     Active Substance: ARMODAFINIL
  4. FLAXSEED [Concomitant]
     Active Substance: FLAX SEED
  5. POTASSIUM GLUCONATE [Concomitant]
     Active Substance: POTASSIUM GLUCONATE
  6. MAGNESIUM [Concomitant]
     Active Substance: MAGNESIUM
  7. CPAP MACHINE [Concomitant]
  8. CALCIUM CITRATE +D [Concomitant]
     Active Substance: CALCIUM CITRATE\VITAMIN D
  9. MULTI-VITAMIN [Concomitant]
     Active Substance: .ALPHA.-TOCOPHEROL ACETATE, DL-\ASCORBIC ACID\CYANOCOBALAMIN\FLUORIDE ION\FOLIC ACID\NIACIN\PYRIDOXINE\RIBOFLAVIN\THIAMINE\VITAMIN A\VITAMIN D
  10. VITAMIN D3 [Concomitant]
     Active Substance: CHOLECALCIFEROL
  11. VITAMIN B100 [Concomitant]

REACTIONS (8)
  - Dysphagia [None]
  - Blister [None]
  - Thirst [None]
  - Rash [None]
  - Dysphonia [None]
  - Dry mouth [None]
  - Pruritus [None]
  - Decreased appetite [None]

NARRATIVE: CASE EVENT DATE: 20180301
